FAERS Safety Report 17325411 (Version 4)
Quarter: 2020Q1

REPORT INFORMATION
  Report Type: Report from Study
  Country: ES (occurrence: ES)
  Receive Date: 20200127
  Receipt Date: 20200320
  Transmission Date: 20200409
  Serious: Yes (Death, Hospitalization)
  Sender: FDA-Public Use
  Company Number: ES-EISAI MEDICAL RESEARCH-EC-2019-059438

PATIENT
  Age: 48 Year
  Sex: Female
  Weight: 55.6 kg

DRUGS (20)
  1. LENVATINIB [Suspect]
     Active Substance: LENVATINIB
     Indication: RENAL CELL CARCINOMA
     Route: 048
     Dates: start: 20190711, end: 20190719
  2. EVEROLIMUS. [Suspect]
     Active Substance: EVEROLIMUS
     Route: 048
     Dates: start: 20190809, end: 20200119
  3. CASENLAX [Concomitant]
  4. DEXKETOPROFEN [Concomitant]
     Active Substance: DEXKETOPROFEN
  5. LENVATINIB [Suspect]
     Active Substance: LENVATINIB
     Route: 048
     Dates: start: 20190806, end: 20190807
  6. LYRICA [Concomitant]
     Active Substance: PREGABALIN
  7. LEVOTHYROXINE. [Concomitant]
     Active Substance: LEVOTHYROXINE
  8. EUTIROX [Concomitant]
     Active Substance: LEVOTHYROXINE SODIUM
  9. METHADONE [Concomitant]
     Active Substance: METHADONE HYDROCHLORIDE
  10. EVEROLIMUS. [Suspect]
     Active Substance: EVEROLIMUS
     Indication: RENAL CELL CARCINOMA
     Route: 048
     Dates: start: 20190711, end: 20190719
  11. PANTOPRAZOLE [Concomitant]
     Active Substance: PANTOPRAZOLE
  12. LENVATINIB [Suspect]
     Active Substance: LENVATINIB
     Route: 048
     Dates: start: 20190809, end: 20200119
  13. CLEXANE [Concomitant]
     Active Substance: ENOXAPARIN SODIUM
  14. MIRTAZAPINE. [Concomitant]
     Active Substance: MIRTAZAPINE
  15. TORASEMIDE [Concomitant]
     Active Substance: TORSEMIDE
  16. NAPROXEN. [Concomitant]
     Active Substance: NAPROXEN
  17. TARDYFERON [Concomitant]
     Active Substance: FERROUS SULFATE
  18. EVEROLIMUS. [Suspect]
     Active Substance: EVEROLIMUS
     Route: 048
     Dates: start: 20190806, end: 20190807
  19. DIAZEPAM. [Concomitant]
     Active Substance: DIAZEPAM
  20. PARACETAMOL [Concomitant]
     Active Substance: ACETAMINOPHEN

REACTIONS (2)
  - Tumour pain [Recovering/Resolving]
  - Intestinal perforation [Fatal]

NARRATIVE: CASE EVENT DATE: 20190717
